FAERS Safety Report 13944337 (Version 1)
Quarter: 2017Q3

REPORT INFORMATION
  Report Type: Spontaneous
  Country: US (occurrence: US)
  Receive Date: 20170907
  Receipt Date: 20170907
  Transmission Date: 20171128
  Serious: No
  Sender: FDA-Public Use
  Company Number: US-ROCHE-1321805

PATIENT
  Sex: Female

DRUGS (2)
  1. CYCLOPROPANE [Concomitant]
     Active Substance: CYCLOPROPANE
  2. RITUXAN [Suspect]
     Active Substance: RITUXIMAB
     Indication: RHEUMATOID ARTHRITIS
     Route: 065

REACTIONS (2)
  - Drug hypersensitivity [Unknown]
  - Pain [Unknown]
